FAERS Safety Report 12233359 (Version 1)
Quarter: 2016Q2

REPORT INFORMATION
  Report Type: Spontaneous
  Country: US (occurrence: US)
  Receive Date: 20160404
  Receipt Date: 20160404
  Transmission Date: 20160815
  Serious: No
  Sender: FDA-Public Use
  Company Number: US-STRIDES ARCOLAB LIMITED-2016SP001131

PATIENT

DRUGS (4)
  1. IMIQUIMOD. [Suspect]
     Active Substance: IMIQUIMOD
     Indication: MYCOSIS FUNGOIDES STAGE I
     Dosage: QD FIVE DAYS A WEEK
     Route: 061
  2. PREDNISONE. [Concomitant]
     Active Substance: PREDNISONE
     Indication: ECZEMA NUMMULAR
     Dosage: UNK
     Route: 048
  3. BETAMETHASONE. [Concomitant]
     Active Substance: BETAMETHASONE
     Indication: ECZEMA NUMMULAR
     Dosage: UNK
     Route: 061
  4. IMIQUIMOD. [Suspect]
     Active Substance: IMIQUIMOD
     Indication: ECZEMA
     Dosage: QD FIVE DAYS A WEEK
     Route: 061

REACTIONS (2)
  - Off label use [Unknown]
  - Application site erythema [Unknown]
